FAERS Safety Report 6824523-0 (Version None)
Quarter: 2010Q3

REPORT INFORMATION
  Report Type: 
  Country: None (occurrence: None)
  Receive Date: 20100708
  Receipt Date: 20100629
  Transmission Date: 20110219
  Serious: Yes (Other)
  Sender: FDA-Public Use
  Company Number: DE-MERCK-1007DEU00014

PATIENT
  Age: 52 Year
  Sex: Female

DRUGS (4)
  1. MAXALT [Suspect]
     Indication: MIGRAINE
     Route: 048
  2. OMEPRAZOLE [Concomitant]
     Route: 065
  3. PANCREATIN [Concomitant]
     Route: 065
  4. ALLOPURINOL [Concomitant]
     Route: 065

REACTIONS (2)
  - ABDOMINAL PAIN [None]
  - COLONIC POLYP [None]
